FAERS Safety Report 11058847 (Version 2)
Quarter: 2015Q2

REPORT INFORMATION
  Report Type: Spontaneous
  Country: US (occurrence: US)
  Receive Date: 20150423
  Receipt Date: 20150508
  Transmission Date: 20150821
  Serious: Yes (Other)
  Sender: FDA-Public Use
  Company Number: US-PFIZER INC-2015136799

PATIENT
  Age: 60 Year
  Sex: Male
  Weight: 73 kg

DRUGS (2)
  1. MORPHINE SULFATE. [Suspect]
     Active Substance: MORPHINE SULFATE
  2. CODEINE [Suspect]
     Active Substance: CODEINE

REACTIONS (4)
  - Aggression [Unknown]
  - Impulse-control disorder [Unknown]
  - Vomiting [Unknown]
  - Hallucination, visual [Unknown]
